FAERS Safety Report 7980040-6 (Version None)
Quarter: 2011Q4

REPORT INFORMATION
  Report Type: 
  Country: None (occurrence: None)
  Receive Date: 20111214
  Receipt Date: 20111207
  Transmission Date: 20120403
  Serious: Yes (Other)
  Sender: FDA-Public Use
  Company Number: PHHY2011IE89497

PATIENT
  Sex: Female
  Weight: 73.5 kg

DRUGS (8)
  1. IBANDRONATE SODIUM [Concomitant]
     Indication: OSTEOPOROSIS
     Dosage: 150 MG, QMO
     Route: 048
     Dates: start: 20070516, end: 20110915
  2. LANSOPRAZOLE [Concomitant]
     Indication: PROPHYLAXIS
     Dosage: 30 MG, UNK
     Route: 048
     Dates: start: 20110126, end: 20111114
  3. NEBIVOLOL HCL [Concomitant]
     Indication: HYPERTENSION
     Dosage: 5 UG, UNK
     Route: 048
     Dates: start: 20070131, end: 20111114
  4. CLOPIDOGREL [Concomitant]
     Dosage: UNK
     Dates: start: 20110611
  5. EXFORGE [Suspect]
     Indication: HYPERTENSION
     Dosage: 1 DF, UNK
     Route: 048
     Dates: start: 20080618, end: 20110519
  6. BUMETANIDE [Concomitant]
     Dosage: 1 MG, DAILY
  7. AMLODIPINE [Concomitant]
     Indication: HYPERTENSION
     Dosage: 10 MG, UNK
     Route: 048
     Dates: start: 20110519, end: 20111114
  8. ATORVASTATIN [Concomitant]
     Indication: HYPERCHOLESTEROLAEMIA
     Dosage: 40 MG, UNK
     Route: 048
     Dates: start: 20100210, end: 20111114

REACTIONS (1)
  - HYPONATRAEMIA [None]
